FAERS Safety Report 15808770 (Version 3)
Quarter: 2019Q2

REPORT INFORMATION
  Report Type: Report from Study
  Country: US (occurrence: US)
  Receive Date: 20190110
  Receipt Date: 20190628
  Transmission Date: 20190711
  Serious: No
  Sender: FDA-Public Use
  Company Number: US-ROCHE-2206480

PATIENT
  Age: 77 Year
  Sex: Female
  Weight: 70.82 kg

DRUGS (1)
  1. OCREVUS [Suspect]
     Active Substance: OCRELIZUMAB
     Indication: RELAPSING-REMITTING MULTIPLE SCLEROSIS
     Dosage: HALF DOSE
     Route: 065
     Dates: start: 20180620

REACTIONS (9)
  - Chills [Unknown]
  - Respiration abnormal [Unknown]
  - Fatigue [Unknown]
  - Nasopharyngitis [Unknown]
  - Chest discomfort [Unknown]
  - Erythema [Unknown]
  - Cardiac flutter [Unknown]
  - Oropharyngeal pain [Unknown]
  - Vertigo [Unknown]

NARRATIVE: CASE EVENT DATE: 20181226
